FAERS Safety Report 6655262-7 (Version None)
Quarter: 2010Q1

REPORT INFORMATION
  Report Type: 
  Country: None (occurrence: None)
  Receive Date: 20100329
  Receipt Date: 20100325
  Transmission Date: 20100710
  Serious: Yes (Other)
  Sender: FDA-Public Use
  Company Number: DE-BRISTOL-MYERS SQUIBB COMPANY-15016439

PATIENT
  Age: 23 Year
  Sex: Male
  Weight: 74 kg

DRUGS (5)
  1. ABILIFY [Suspect]
     Dosage: 3 TABLETS.
     Route: 048
  2. ALCOHOL [Suspect]
     Dosage: 5 BOTTLES OF BEER.
  3. CITALOPRAM HYDROBROMIDE [Suspect]
     Dosage: 6 TABLETS.
     Route: 048
  4. SEROQUEL [Suspect]
     Dosage: SEROQUEL PROLONG 200.6 TABLETS.
     Route: 048
  5. VENLAFAXINE HCL [Suspect]
     Dosage: VENLAFAXINE150 RETARD.ALSO TAKEN AS VENLAFAXINE75MG+37.5MG RETARD TOTALDOSE450MG+225MG.6 TABS.ORALLY
     Route: 048

REACTIONS (4)
  - ILEUS PARALYTIC [None]
  - INTENTIONAL OVERDOSE [None]
  - SUICIDE ATTEMPT [None]
  - TACHYCARDIA [None]
